FAERS Safety Report 8838661 (Version 2)
Quarter: 2012Q4

REPORT INFORMATION
  Report Type: 
  Country: JP (occurrence: JP)
  Receive Date: 20121012
  Receipt Date: 20121203
  Transmission Date: 20130627
  Serious: No
  Sender: FDA-Public Use
  Company Number: JP-ASTRAZENECA-2012SE76614

PATIENT
  Age: 5 Year
  Sex: Male
  Weight: 16 kg

DRUGS (8)
  1. XYLOCAINE [Suspect]
     Indication: LOCAL ANAESTHESIA
     Dosage: Liquid medicine for external use
     Route: 045
  2. XYLOCAINE [Suspect]
     Indication: LOCAL ANAESTHESIA
     Dosage: Liquid medicine for external use
     Route: 049
  3. MONTELUKAST SODIUM [Concomitant]
     Dosage: Dose unknown
     Route: 065
  4. MEQUITAZINE [Concomitant]
     Dosage: Dose unknown
     Route: 065
  5. PROCATEROL HYDROCHLORIDE HYDRATE [Concomitant]
     Dosage: Dose unknown
     Route: 065
  6. CARBOCISTEINE [Concomitant]
     Dosage: Dose unknown
     Route: 065
  7. SEVOFRANE [Concomitant]
     Dosage: Dose unknown
     Route: 065
  8. ADRENALINE [Concomitant]
     Indication: LOCAL ANAESTHESIA
     Dosage: Medicine for external use
     Route: 045

REACTIONS (1)
  - Bronchospasm [Recovered/Resolved]
